FAERS Safety Report 6504464-9 (Version None)
Quarter: 2009Q4

REPORT INFORMATION
  Report Type: 
  Country: None (occurrence: None)
  Receive Date: 20091215
  Receipt Date: 20091130
  Transmission Date: 20100525
  Serious: Yes (Hospitalization)
  Sender: FDA-Public Use
  Company Number: KV200900826

PATIENT
  Sex: Female

DRUGS (3)
  1. MORPHINE SULFATE [Suspect]
     Indication: PAIN
     Dates: start: 20080701
  2. MORPHINE SULFATE [Suspect]
     Indication: PAIN
     Dates: start: 20080701
  3. MORPHINE SULFATE [Suspect]
     Indication: PAIN
     Dates: start: 20080701

REACTIONS (6)
  - ACUTE RESPIRATORY FAILURE [None]
  - DRUG TOXICITY [None]
  - DYSARTHRIA [None]
  - LETHARGY [None]
  - RESPIRATORY DISTRESS [None]
  - UNRESPONSIVE TO STIMULI [None]
